FAERS Safety Report 6335905-8 (Version None)
Quarter: 2009Q3

REPORT INFORMATION
  Report Type: 
  Country: None (occurrence: None)
  Receive Date: 20090826
  Receipt Date: 20081204
  Transmission Date: 20100115
  Serious: Yes (Other)
  Sender: FDA-Public Use
  Company Number: 08-093

PATIENT
  Age: 62 Year
  Sex: Female

DRUGS (8)
  1. PREDNISONE [Suspect]
     Indication: BRONCHIECTASIS
     Dosage: 8 TABLETS, QD, PO
     Route: 048
  2. LANTUS [Concomitant]
  3. METFORMIN HCL [Concomitant]
  4. OXYCODONE [Concomitant]
  5. MS CONTIN [Concomitant]
  6. SIMVASTATIN [Concomitant]
  7. XOPENEX [Concomitant]
  8. MUCOMYST [Concomitant]

REACTIONS (1)
  - CATARACT [None]
